FAERS Safety Report 25451192 (Version 1)
Quarter: 2025Q2

REPORT INFORMATION
  Report Type: Spontaneous
  Country: US (occurrence: None)
  Receive Date: 20250618
  Receipt Date: 20250618
  Transmission Date: 20250716
  Serious: Yes (Hospitalization)
  Sender: FDA-CTU
  Company Number: None

PATIENT
  Age: 33 Year
  Sex: Female
  Weight: 65.8 kg

DRUGS (1)
  1. GADOTERATE MEGLUMINE [Suspect]
     Active Substance: GADOTERATE MEGLUMINE
     Dates: start: 20250513, end: 20250513

REACTIONS (5)
  - Throat irritation [None]
  - Dizziness [None]
  - Wheezing [None]
  - Dyspnoea [None]
  - Contrast media reaction [None]

NARRATIVE: CASE EVENT DATE: 20250513
